FAERS Safety Report 10072377 (Version 3)
Quarter: 2014Q3

REPORT INFORMATION
  Report Type: Spontaneous
  Country: US (occurrence: US)
  Receive Date: 20140411
  Receipt Date: 20140716
  Transmission Date: 20150326
  Serious: Yes (Hospitalization, Other)
  Sender: FDA-Public Use
  Company Number: US-BAYER-2014-054176

PATIENT
  Age: 23 Year
  Sex: Female
  Weight: 48 kg

DRUGS (1)
  1. MIRENA [Suspect]
     Active Substance: LEVONORGESTREL
     Indication: CONTRACEPTION
     Dosage: 20 MCG/24HR, CONT
     Route: 015
     Dates: start: 20090330, end: 20110427

REACTIONS (15)
  - Depression [None]
  - Post procedural discomfort [None]
  - Procedural pain [None]
  - General physical health deterioration [None]
  - Anxiety [None]
  - Dyspareunia [None]
  - Injury [None]
  - Infection [None]
  - Scar [None]
  - Fear [None]
  - Abdominal pain [None]
  - Anhedonia [None]
  - Uterine perforation [None]
  - Medical device pain [None]
  - Emotional distress [None]
